FAERS Safety Report 7137814-3 (Version None)
Quarter: 2010Q4

REPORT INFORMATION
  Report Type: 
  Country: None (occurrence: None)
  Receive Date: 20101206
  Receipt Date: 20101123
  Transmission Date: 20110411
  Serious: Yes (Hospitalization, Other)
  Sender: FDA-Public Use
  Company Number: US-ELI_LILLY_AND_COMPANY-US201011006975

PATIENT
  Sex: Male

DRUGS (1)
  1. ADCIRCA [Suspect]
     Indication: PULMONARY HYPERTENSION
     Dosage: 40 MG, DAILY (1/D)
     Dates: start: 20100716

REACTIONS (7)
  - CARDIAC FAILURE CHRONIC [None]
  - DISEASE PROGRESSION [None]
  - HAEMOPTYSIS [None]
  - PULMONARY HYPERTENSION [None]
  - RENAL FAILURE CHRONIC [None]
  - RIGHT VENTRICULAR DYSFUNCTION [None]
  - SLEEP APNOEA SYNDROME [None]
